FAERS Safety Report 15370586 (Version 1)
Quarter: 2018Q3

REPORT INFORMATION
  Report Type: Spontaneous
  Country: US (occurrence: US)
  Receive Date: 20180911
  Receipt Date: 20180911
  Transmission Date: 20181010
  Serious: Yes (Other)
  Sender: FDA-Public Use
  Company Number: US-BAYER-2018-166043

PATIENT

DRUGS (1)
  1. A AND D ORIGINAL [Suspect]
     Active Substance: LANOLIN\PETROLATUM
     Dosage: UNK
     Route: 064

REACTIONS (2)
  - Maternal condition affecting foetus [None]
  - Foetal exposure during pregnancy [None]
